FAERS Safety Report 5191652-X (Version None)
Quarter: 2006Q4

REPORT INFORMATION
  Report Type: 
  Country: None (occurrence: None)
  Receive Date: 20061219
  Receipt Date: 20061206
  Transmission Date: 20070319
  Serious: Yes (Hospitalization, Other)
  Sender: FDA-Public Use
  Company Number: 2006151587

PATIENT
  Age: 18 Year
  Sex: Male
  Weight: 62.1 kg

DRUGS (1)
  1. GENOTROPIN [Suspect]
     Indication: HYPOPITUITARISM
     Dosage: 1.6 MG
     Dates: start: 20061009

REACTIONS (3)
  - HEADACHE [None]
  - MEDULLOBLASTOMA [None]
  - METASTASIS [None]
